FAERS Safety Report 5097975-7 (Version None)
Quarter: 2006Q3

REPORT INFORMATION
  Report Type: 
  Country: None (occurrence: None)
  Receive Date: 20060905
  Receipt Date: 20060905
  Transmission Date: 20061208
  Serious: Yes (Death)
  Sender: FDA-Public Use
  Company Number: None

PATIENT
  Age: 29 Year
  Sex: Male
  Weight: 87 kg

DRUGS (1)
  1. XANAX [Suspect]
     Indication: ANXIETY
     Dates: start: 20060101, end: 20060810

REACTIONS (7)
  - EAR HAEMORRHAGE [None]
  - EAR PAIN [None]
  - HYPOACUSIS [None]
  - INSOMNIA [None]
  - MOVEMENT DISORDER [None]
  - MYALGIA [None]
  - SOMNOLENCE [None]
